FAERS Safety Report 13320077 (Version 1)
Quarter: 2017Q1

REPORT INFORMATION
  Report Type: Report from Study
  Country: US (occurrence: US)
  Receive Date: 20170310
  Receipt Date: 20170310
  Transmission Date: 20170428
  Serious: Yes (Death)
  Sender: FDA-Public Use
  Company Number: US-ASTRAZENECA-2017SE23811

PATIENT
  Sex: Male

DRUGS (1)
  1. BYETTA [Suspect]
     Active Substance: EXENATIDE
     Route: 065
     Dates: start: 1997

REACTIONS (4)
  - Abdominal discomfort [Fatal]
  - Weight decreased [Fatal]
  - Brain neoplasm [Fatal]
  - Drug ineffective [Fatal]
